FAERS Safety Report 4809277-1 (Version None)
Quarter: 2005Q4

REPORT INFORMATION
  Report Type: 
  Country: None (occurrence: None)
  Receive Date: 20051021
  Receipt Date: 20041203
  Transmission Date: 20060501
  Serious: Yes (Congenital Anomaly)
  Sender: FDA-Public Use
  Company Number: 2005-CZ-00307

PATIENT
  Age: 35 Year
  Sex: Female

DRUGS (4)
  1. FLUOXETINE [Suspect]
     Indication: BULIMIA NERVOSA
     Dosage: ORAL
     Route: 048
     Dates: start: 19990101
  2. SALMETEROL [Concomitant]
  3. SALBUTAMOL [Concomitant]
  4. PREDNISOLONE [Concomitant]

REACTIONS (2)
  - CONGENITAL EYE DISORDER [None]
  - DRUG EXPOSURE DURING PREGNANCY [None]
